FAERS Safety Report 7513177-6 (Version None)
Quarter: 2011Q2

REPORT INFORMATION
  Report Type: 
  Country: None (occurrence: None)
  Receive Date: 20110531
  Receipt Date: 20110524
  Transmission Date: 20111010
  Serious: Yes (Hospitalization, Other)
  Sender: FDA-Public Use
  Company Number: US-MERCK-1012USA00178

PATIENT
  Age: 56 Year
  Sex: Female

DRUGS (8)
  1. FOSAMAX [Suspect]
     Route: 048
     Dates: start: 19980122, end: 20000101
  2. FOSAMAX [Suspect]
     Indication: OSTEOPOROSIS
     Route: 048
     Dates: start: 20040107, end: 20090401
  3. SUCEE [Concomitant]
     Route: 065
     Dates: start: 19900101
  4. FOSAMAX [Suspect]
     Route: 048
     Dates: start: 20010523, end: 20010701
  5. CALCIUM (UNSPECIFIED) [Concomitant]
     Route: 065
  6. FOSAMAX [Suspect]
     Route: 048
     Dates: start: 20010801
  7. VITAMINS (UNSPECIFIED) [Concomitant]
     Route: 065
  8. VITAMIN D (UNSPECIFIED) [Concomitant]
     Route: 065

REACTIONS (4)
  - FEMUR FRACTURE [None]
  - LOW TURNOVER OSTEOPATHY [None]
  - IMPAIRED HEALING [None]
  - ADVERSE EVENT [None]
